FAERS Safety Report 20851393 (Version 4)
Quarter: 2022Q2

REPORT INFORMATION
  Report Type: Spontaneous
  Country: US (occurrence: US)
  Receive Date: 20220519
  Receipt Date: 20220530
  Transmission Date: 20220720
  Serious: Yes (Other)
  Sender: FDA-Public Use
  Company Number: US-AMGEN-USASP2022085403

PATIENT
  Age: 66 Year
  Sex: Female
  Weight: 54.422 kg

DRUGS (1)
  1. EVENITY [Suspect]
     Active Substance: ROMOSOZUMAB-AQQG
     Indication: Osteoporosis postmenopausal
     Dosage: UNK
     Route: 065
     Dates: start: 20220510, end: 20220510

REACTIONS (5)
  - Dizziness [Unknown]
  - Balance disorder [Unknown]
  - Feeling abnormal [Unknown]
  - Muscle disorder [Unknown]
  - Insomnia [Unknown]

NARRATIVE: CASE EVENT DATE: 20220501
